FAERS Safety Report 18897318 (Version 1)
Quarter: 2021Q1

REPORT INFORMATION
  Report Type: Spontaneous
  Country: US (occurrence: US)
  Receive Date: 20210215
  Receipt Date: 20210215
  Transmission Date: 20210420
  Serious: Yes (Hospitalization)
  Sender: FDA-Public Use
  Company Number: None

PATIENT
  Age: 40 Year
  Sex: Male
  Weight: 141 kg

DRUGS (1)
  1. BAMLANIVIMAB. [Suspect]
     Active Substance: BAMLANIVIMAB
     Indication: COVID-19
     Route: 042
     Dates: start: 20210122

REACTIONS (5)
  - Panic attack [None]
  - Hypoxia [None]
  - Pneumonia [None]
  - Anxiety [None]
  - Lung disorder [None]

NARRATIVE: CASE EVENT DATE: 20210123
